FAERS Safety Report 18186893 (Version 2)
Quarter: 2020Q3

REPORT INFORMATION
  Report Type: Spontaneous
  Country: US (occurrence: US)
  Receive Date: 20200824
  Receipt Date: 20200928
  Transmission Date: 20201103
  Serious: No
  Sender: FDA-Public Use
  Company Number: US-JNJFOC-20200832909

PATIENT
  Age: 51 Year
  Sex: Female
  Weight: 150 kg

DRUGS (14)
  1. VITAMIN D                          /00107901/ [Concomitant]
     Active Substance: ERGOCALCIFEROL
  2. TOPAMAX [Suspect]
     Active Substance: TOPIRAMATE
     Indication: MIGRAINE
     Route: 048
  3. REXULTI [Concomitant]
     Active Substance: BREXPIPRAZOLE
  4. NEXIUM [Concomitant]
     Active Substance: ESOMEPRAZOLE MAGNESIUM
  5. BABY ASPIRIN [Concomitant]
     Active Substance: ASPIRIN
  6. PERCOCET [Concomitant]
     Active Substance: ACETAMINOPHEN\OXYCODONE HYDROCHLORIDE
  7. DOSTINEX [Concomitant]
     Active Substance: CABERGOLINE
     Route: 065
  8. CENTRUM SILVER                     /07431401/ [Concomitant]
     Active Substance: MINERALS\VITAMINS
  9. SIMVASTATIN. [Concomitant]
     Active Substance: SIMVASTATIN
  10. XANAX [Concomitant]
     Active Substance: ALPRAZOLAM
     Route: 065
  11. ZOFRAN [Concomitant]
     Active Substance: ONDANSETRON HYDROCHLORIDE
     Route: 065
  12. MECLIZINE [Concomitant]
     Active Substance: MECLIZINE HYDROCHLORIDE
     Route: 065
  13. COGENTIN [Concomitant]
     Active Substance: BENZTROPINE MESYLATE
     Route: 065
  14. PROMETHAZINE [Concomitant]
     Active Substance: PROMETHAZINE HYDROCHLORIDE
     Route: 065

REACTIONS (3)
  - Diplopia [Not Recovered/Not Resolved]
  - Drug ineffective [Unknown]
  - Blood prolactin increased [Not Recovered/Not Resolved]
